FAERS Safety Report 10156653 (Version 2)
Quarter: 2014Q2

REPORT INFORMATION
  Report Type: Spontaneous
  Country: PL (occurrence: PL)
  Receive Date: 20140507
  Receipt Date: 20140520
  Transmission Date: 20141212
  Serious: Yes (Other)
  Sender: FDA-Public Use
  Company Number: PL-BAYER-2014-062648

PATIENT
  Age: 38 Year
  Sex: Female

DRUGS (1)
  1. INTERFERON BETA - 1B [Suspect]
     Dosage: UNK
     Dates: start: 200312, end: 200607

REACTIONS (3)
  - Multiple sclerosis relapse [None]
  - Drug intolerance [None]
  - Drug ineffective [None]
